FAERS Safety Report 17948223 (Version 1)
Quarter: 2020Q2

REPORT INFORMATION
  Report Type: Spontaneous
  Country: US (occurrence: US)
  Receive Date: 20200625
  Receipt Date: 20200625
  Transmission Date: 20200714
  Serious: Yes (Other)
  Sender: FDA-Public Use
  Company Number: US-NOVOPROD-716731

PATIENT
  Sex: Female

DRUGS (1)
  1. OZEMPIC [Suspect]
     Active Substance: SEMAGLUTIDE
     Indication: DIABETES MELLITUS MANAGEMENT
     Route: 058

REACTIONS (3)
  - Vomiting [Not Recovered/Not Resolved]
  - Nausea [Recovering/Resolving]
  - Pancreatitis [Not Recovered/Not Resolved]
